FAERS Safety Report 6693358-4 (Version None)
Quarter: 2010Q2

REPORT INFORMATION
  Report Type: 
  Country: None (occurrence: None)
  Receive Date: 20100420
  Receipt Date: 20100407
  Transmission Date: 20101027
  Serious: No
  Sender: FDA-Public Use
  Company Number: UTC-000924

PATIENT
  Age: 51 Year
  Sex: Female

DRUGS (7)
  1. TYVASO [Suspect]
     Indication: PULMONARY ARTERIAL HYPERTENSION
     Dosage: 216 MCG (54 MCG, 4 IN 1 D), INHALATION
     Route: 055
     Dates: start: 20091102
  2. DIGOXIN [Concomitant]
  3. LASIX [Concomitant]
  4. COUMADIN [Concomitant]
  5. REVATIO [Concomitant]
  6. LETAIRIS (AMBRISENTAN) [Concomitant]
  7. ULTRAM [Concomitant]

REACTIONS (2)
  - NODAL RHYTHM [None]
  - VENTRICULAR EXTRASYSTOLES [None]
